FAERS Safety Report 21196470 (Version 1)
Quarter: 2022Q3

REPORT INFORMATION
  Report Type: Spontaneous
  Country: JP (occurrence: None)
  Receive Date: 20220810
  Receipt Date: 20220810
  Transmission Date: 20221027
  Serious: Yes (Hospitalization, Other)
  Sender: FDA-Public Use
  Company Number: 2022A281724

PATIENT
  Age: 31 Year
  Sex: Female

DRUGS (2)
  1. QUETIAPINE [Suspect]
     Active Substance: QUETIAPINE
     Indication: Product used for unknown indication
     Dosage: 14500.0MG UNKNOWN
     Route: 048
  2. RISPERIDONE [Suspect]
     Active Substance: RISPERIDONE
     Indication: Product used for unknown indication
     Dosage: 38.0MG UNKNOWN
     Route: 048

REACTIONS (5)
  - Toxicity to various agents [Unknown]
  - Intentional overdose [Unknown]
  - Depressed level of consciousness [Recovering/Resolving]
  - Dyskinesia [Recovering/Resolving]
  - Generalised tonic-clonic seizure [Unknown]
